FAERS Safety Report 23716939 (Version 4)
Quarter: 2024Q3

REPORT INFORMATION
  Report Type: Spontaneous
  Country: US (occurrence: US)
  Receive Date: 20240408
  Receipt Date: 20240914
  Transmission Date: 20241017
  Serious: Yes (Hospitalization, Other)
  Sender: TEVA
  Company Number: US-TEVA-VS-3177139

PATIENT
  Age: 34 Year
  Sex: Female

DRUGS (1)
  1. ALPRAZOLAM [Suspect]
     Active Substance: ALPRAZOLAM
     Indication: Generalised anxiety disorder
     Dosage: 3 TABLETS PER DAY
     Route: 065

REACTIONS (6)
  - Panic attack [Unknown]
  - Drug ineffective [Unknown]
  - Somnolence [Unknown]
  - Product quality issue [Unknown]
  - Suicidal ideation [Unknown]
  - Crying [Unknown]

NARRATIVE: CASE EVENT DATE: 20240301
